FAERS Safety Report 4759498-1 (Version None)
Quarter: 2005Q3

REPORT INFORMATION
  Report Type: 
  Country: None (occurrence: None)
  Receive Date: 20050831
  Receipt Date: 20050810
  Transmission Date: 20060218
  Serious: Yes (Hospitalization)
  Sender: FDA-Public Use
  Company Number: WAES 0508USA01889

PATIENT
  Age: 51 Year
  Sex: Female

DRUGS (4)
  1. MAXALT [Suspect]
     Indication: MIGRAINE
     Dosage: SEE IMAGE
     Route: 048
     Dates: start: 20050601, end: 20050601
  2. MAXALT [Suspect]
     Indication: MIGRAINE
     Dosage: SEE IMAGE
     Route: 048
     Dates: start: 20050719, end: 20050719
  3. MAXALT [Suspect]
     Indication: MIGRAINE
     Dosage: SEE IMAGE
     Route: 048
     Dates: start: 20050722, end: 20050722
  4. BLINDED THEARPY [Suspect]

REACTIONS (5)
  - AMNESIA [None]
  - C-REACTIVE PROTEIN INCREASED [None]
  - CEREBROVASCULAR ACCIDENT [None]
  - DREAMY STATE [None]
  - MIGRAINE [None]
